FAERS Safety Report 9360110 (Version 1)
Quarter: 2013Q2

REPORT INFORMATION
  Report Type: Spontaneous
  Country: US (occurrence: US)
  Receive Date: 20130621
  Receipt Date: 20130621
  Transmission Date: 20140414
  Serious: No
  Sender: FDA-Public Use
  Company Number: US-PFIZER INC-2013185171

PATIENT
  Age: 53 Year
  Sex: Male
  Weight: 109 kg

DRUGS (6)
  1. NEURONTIN [Suspect]
     Indication: SPINAL PAIN
     Dosage: UNK
     Dates: end: 201301
  2. NEURONTIN [Suspect]
     Indication: ARTHRALGIA
  3. METHADONE [Suspect]
     Indication: SPINAL PAIN
     Dosage: 5 MG, UNK
  4. METHADONE [Suspect]
     Indication: ARTHRALGIA
  5. NEXIUM [Suspect]
     Indication: DYSPEPSIA
     Dosage: 40 MG, UNK
     Dates: start: 2012
  6. NEXIUM [Suspect]
     Indication: GASTROOESOPHAGEAL REFLUX DISEASE

REACTIONS (3)
  - Oedema peripheral [Recovered/Resolved]
  - Muscle twitching [Unknown]
  - Insomnia [Unknown]
